FAERS Safety Report 8559254-2 (Version None)
Quarter: 2012Q3

REPORT INFORMATION
  Report Type: 
  Country: None (occurrence: None)
  Receive Date: 20120720
  Receipt Date: 20120710
  Transmission Date: 20120928
  Serious: Yes (Hospitalization)
  Sender: FDA-Public Use
  Company Number: 2012CP000081

PATIENT
  Age: 65 Year
  Sex: Female

DRUGS (6)
  1. ROCEPHIN [Suspect]
     Dosage: 2 GRAM;1/1 DAY; IV
     Route: 042
     Dates: start: 20120426, end: 20120521
  2. KONAKION [Concomitant]
  3. METRONIDAZOLE [Suspect]
     Dosage: 500 MG;3/1 DAY;PO
     Route: 048
     Dates: start: 20120426, end: 20120521
  4. ACETAMINOPHEN [Suspect]
     Dosage: ;AS NECESSARY;IV
     Route: 042
     Dates: start: 20120101, end: 20120525
  5. KEPPRA [Suspect]
     Dosage: 2 GRAM;1/1 DAY;PO
     Route: 048
     Dates: start: 20120426, end: 20120527
  6. PANTOPRAZOLE [Suspect]
     Dosage: 40 MG;1/1 DAY;PO
     Route: 048
     Dates: start: 20120401, end: 20120525

REACTIONS (4)
  - BRAIN ABSCESS [None]
  - BRAIN OEDEMA [None]
  - OEDEMA PERIPHERAL [None]
  - DRUG RASH WITH EOSINOPHILIA AND SYSTEMIC SYMPTOMS [None]
